FAERS Safety Report 23341149 (Version 2)
Quarter: 2024Q4

REPORT INFORMATION
  Report Type: Spontaneous
  Country: US (occurrence: US)
  Receive Date: 20231227
  Receipt Date: 20241219
  Transmission Date: 20250115
  Serious: No
  Sender: RECORDATI
  Company Number: US-RECORDATI RARE DISEASE INC.-2023006231

PATIENT

DRUGS (23)
  1. SIGNIFOR [Suspect]
     Active Substance: PASIREOTIDE DIASPARTATE
     Indication: Hypoglycaemia
     Dosage: 0.3 MILLILITER, QD
     Route: 058
     Dates: start: 20221018
  2. SIGNIFOR [Suspect]
     Active Substance: PASIREOTIDE DIASPARTATE
     Indication: Off label use
  3. VITAMIN B COMPLEX [Concomitant]
     Active Substance: CYANOCOBALAMIN\DEXPANTHENOL\NIACINAMIDE\PYRIDOXINE HYDROCHLORIDE\RIBOFLAVIN 5^-PHOSPHATE SODIUM\THIA
     Indication: Product used for unknown indication
  4. CALCIUM\CHOLECALCIFEROL [Concomitant]
     Active Substance: CALCIUM\CHOLECALCIFEROL
     Indication: Product used for unknown indication
  5. CLONAZEPAM [Concomitant]
     Active Substance: CLONAZEPAM
     Indication: Product used for unknown indication
     Dosage: 1 MILLIGRAM, BID
  6. DEXAMETHASONE [Concomitant]
     Active Substance: DEXAMETHASONE
     Indication: Product used for unknown indication
  7. DICYCLOMINE [Concomitant]
     Active Substance: DICYCLOMINE HYDROCHLORIDE
     Indication: Product used for unknown indication
     Dosage: 20 MILLIGRAM, PRN (AS NEEDED)
  8. GLUCAGON [Concomitant]
     Active Substance: GLUCAGON
     Indication: Product used for unknown indication
     Dosage: UNK, PRN INJECTION
  9. DEXTROSE [Concomitant]
     Active Substance: DEXTROSE MONOHYDRATE
     Indication: Product used for unknown indication
     Dosage: ORAL GEL
     Route: 048
  10. HYDROXYCHLOROQUINE [Concomitant]
     Active Substance: HYDROXYCHLOROQUINE
     Indication: Product used for unknown indication
     Dosage: 200 MILLIGRAM, QD
  11. LAMOTRIGINE [Concomitant]
     Active Substance: LAMOTRIGINE
     Indication: Product used for unknown indication
     Dosage: 25 MILLIGRAM, BID
  12. MAGNESIUM [Concomitant]
     Active Substance: MAGNESIUM
     Indication: Product used for unknown indication
     Dosage: 200 MILLIGRAM, QD
  13. ZOFRAN [Concomitant]
     Active Substance: ONDANSETRON HYDROCHLORIDE
     Indication: Product used for unknown indication
     Dosage: 4 MILLIGRAM
  14. PROLIA [Concomitant]
     Active Substance: DENOSUMAB
     Indication: Product used for unknown indication
  15. TRAZODONE [Concomitant]
     Active Substance: TRAZODONE HYDROCHLORIDE
     Indication: Product used for unknown indication
     Dosage: 50 MILLIGRAM
  16. VIIBRYD [Concomitant]
     Active Substance: VILAZODONE HYDROCHLORIDE
     Indication: Product used for unknown indication
     Dosage: 40 MILLIGRAM, QD
  17. VYVANSE [Concomitant]
     Active Substance: LISDEXAMFETAMINE DIMESYLATE
     Indication: Product used for unknown indication
  18. VITAMIN D2 [Concomitant]
     Active Substance: ERGOCALCIFEROL
     Indication: Product used for unknown indication
     Dosage: 2000 INTERNATIONAL UNIT
  19. ZINC OXIDE [Concomitant]
     Active Substance: ZINC OXIDE
     Indication: Product used for unknown indication
  20. VITAMIN B1 [Concomitant]
     Active Substance: THIAMINE HYDROCHLORIDE
     Indication: Product used for unknown indication
     Dosage: 100 MILLIGRAM, QD
  21. SODIUM FLUORIDE [Concomitant]
     Active Substance: SODIUM FLUORIDE
     Indication: Product used for unknown indication
     Dosage: DENTAL CREAM
  22. VITAMIN A [Concomitant]
     Active Substance: VITAMIN A
     Indication: Product used for unknown indication
     Dosage: 3 MILLIGRAM, QD
     Route: 048
  23. DEXTROSE [Concomitant]
     Active Substance: DEXTROSE MONOHYDRATE
     Indication: Product used for unknown indication
     Route: 048

REACTIONS (3)
  - Gastrointestinal disorder [Unknown]
  - Blood glucose decreased [Unknown]
  - Off label use [Recovered/Resolved]

NARRATIVE: CASE EVENT DATE: 20221018
